FAERS Safety Report 16452119 (Version 1)
Quarter: 2019Q2

REPORT INFORMATION
  Report Type: Spontaneous
  Country: JP (occurrence: JP)
  Receive Date: 20190619
  Receipt Date: 20190619
  Transmission Date: 20190711
  Serious: Yes (Other)
  Sender: FDA-Public Use
  Company Number: JP-PFIZER INC-2019250173

PATIENT

DRUGS (1)
  1. AMEPAROMO [Suspect]
     Active Substance: PAROMOMYCIN SULFATE
     Route: 048

REACTIONS (2)
  - Haematochezia [Unknown]
  - Diarrhoea [Unknown]
